FAERS Safety Report 10165407 (Version 1)
Quarter: 2014Q2

REPORT INFORMATION
  Report Type: Spontaneous
  Country: US (occurrence: US)
  Receive Date: 20140510
  Receipt Date: 20140510
  Transmission Date: 20141212
  Serious: No
  Sender: FDA-Public Use
  Company Number: US-BRISTOL-MYERS SQUIBB COMPANY-19825181

PATIENT
  Age: 67 Year
  Sex: Male
  Weight: 81.63 kg

DRUGS (6)
  1. BYDUREON [Suspect]
     Indication: TYPE 2 DIABETES MELLITUS
  2. METFORMIN HCL [Suspect]
  3. ALLEGRA-D [Concomitant]
  4. NASACORT AQ [Concomitant]
  5. SIMVASTATIN [Concomitant]
  6. DIOVAN [Concomitant]

REACTIONS (2)
  - Injection site mass [Unknown]
  - Blood glucose fluctuation [Unknown]
